FAERS Safety Report 5087500-9 (Version None)
Quarter: 2006Q3

REPORT INFORMATION
  Report Type: 
  Country: None (occurrence: None)
  Receive Date: 20060821
  Receipt Date: 20060808
  Transmission Date: 20061208
  Serious: Yes (Other)
  Sender: FDA-Public Use
  Company Number: 2006097952

PATIENT
  Sex: Female

DRUGS (4)
  1. NEURONTIN [Suspect]
     Indication: BURNING SENSATION
  2. NEURONTIN [Suspect]
     Indication: PARAESTHESIA
  3. LYRICA [Suspect]
     Indication: BURNING SENSATION
     Dosage: 50 MG
  4. LYRICA [Suspect]
     Indication: PARAESTHESIA
     Dosage: 50 MG

REACTIONS (3)
  - DEPRESSION [None]
  - DIABETES MELLITUS NON-INSULIN-DEPENDENT [None]
  - NEUROPATHY PERIPHERAL [None]
